FAERS Safety Report 24763614 (Version 1)
Quarter: 2024Q4

REPORT INFORMATION
  Report Type: Report from Study
  Country: US (occurrence: US)
  Receive Date: 20241223
  Receipt Date: 20241223
  Transmission Date: 20250115
  Serious: Yes (Other)
  Sender: ABBVIE
  Company Number: US-ABBVIE-6052394

PATIENT
  Age: 48 Year
  Sex: Male

DRUGS (1)
  1. RINVOQ [Suspect]
     Active Substance: UPADACITINIB
     Indication: Crohn^s disease
     Route: 048
     Dates: start: 202310

REACTIONS (8)
  - Ileostomy [Unknown]
  - Condition aggravated [Unknown]
  - Aphthous ulcer [Recovering/Resolving]
  - Anaemia [Unknown]
  - Sleep deficit [Unknown]
  - Brain fog [Unknown]
  - Oral pain [Recovered/Resolved]
  - Haemorrhage [Unknown]

NARRATIVE: CASE EVENT DATE: 20240501
